FAERS Safety Report 12458361 (Version 1)
Quarter: 2016Q2

REPORT INFORMATION
  Report Type: Spontaneous
  Country: US (occurrence: US)
  Receive Date: 20160613
  Receipt Date: 20160613
  Transmission Date: 20160815
  Serious: Yes (Hospitalization)
  Sender: FDA-Public Use
  Company Number: US-HORIZON-PRE-0177-2016

PATIENT
  Age: 62 Year
  Sex: Male

DRUGS (1)
  1. PREDNISONE. [Suspect]
     Active Substance: PREDNISONE
     Indication: DERMATITIS CONTACT
     Dosage: 100 MG ON THE FIRST DAY, FOLLOWED BY A 10 DAY TAPER

REACTIONS (1)
  - Drug-induced liver injury [Recovered/Resolved]
